FAERS Safety Report 9338345 (Version 1)
Quarter: 2013Q2

REPORT INFORMATION
  Report Type: Spontaneous
  Country: US (occurrence: None)
  Receive Date: 20130605
  Receipt Date: 20130605
  Transmission Date: 20140414
  Serious: No
  Sender: FDA-Public Use
  Company Number: None

PATIENT
  Age: 34 Year
  Sex: Male
  Weight: 66.1 kg

DRUGS (1)
  1. PRIVIGEN [Suspect]
     Indication: METAPNEUMOVIRUS INFECTION
     Dates: start: 20130401

REACTIONS (3)
  - Cytomegalovirus test positive [None]
  - HTLV-1 test positive [None]
  - Suspected transmission of an infectious agent via product [None]
